FAERS Safety Report 8666895 (Version 2)
Quarter: 2013Q2

REPORT INFORMATION
  Report Type: Spontaneous
  Country: DK (occurrence: DE)
  Receive Date: 20120716
  Receipt Date: 20130522
  Transmission Date: 20140414
  Serious: Yes (Other)
  Sender: FDA-Public Use
  Company Number: DE-FRI-1000037083

PATIENT
  Age: 47 Year
  Sex: Female
  Weight: 70 kg

DRUGS (3)
  1. ESCITALOPRAM [Suspect]
     Indication: DEPRESSION
     Dosage: 10 - 15  MG
     Route: 048
     Dates: start: 201001
  2. CYMBALTA [Concomitant]
     Indication: DEPRESSION
     Dosage: 60 MG
     Route: 048
     Dates: end: 201001
  3. METOPROLOL [Concomitant]
     Route: 048

REACTIONS (1)
  - Uveitis [Not Recovered/Not Resolved]
